FAERS Safety Report 7241474-0 (Version None)
Quarter: 2011Q1

REPORT INFORMATION
  Report Type: 
  Country: None (occurrence: None)
  Receive Date: 20110124
  Receipt Date: 20110114
  Transmission Date: 20110831
  Serious: Yes (Hospitalization, Disabling, Other)
  Sender: FDA-Public Use
  Company Number: FR-PFIZER INC-2011009456

PATIENT
  Age: 58 Year
  Sex: Male

DRUGS (6)
  1. EFFEXOR XR [Suspect]
     Dosage: 75 MG, 1X/DAY
     Route: 048
     Dates: start: 20050101
  2. TRANXENE [Concomitant]
  3. ARTANE [Suspect]
     Dosage: 5 MG, 3X/DAY
     Route: 048
     Dates: start: 20050101, end: 20101026
  4. DEPAKENE [Suspect]
     Indication: EPILEPSY
     Dosage: 1000 MG, 2X/DAY
     Route: 048
     Dates: start: 19950101, end: 20101029
  5. RISPERDAL [Suspect]
     Dosage: 2 MG, 1X/DAY
     Route: 048
     Dates: start: 20050101
  6. HAVLANE [Concomitant]

REACTIONS (8)
  - GAIT DISTURBANCE [None]
  - DEPRESSION [None]
  - PARKINSONISM [None]
  - URINARY INCONTINENCE [None]
  - HYPERAMMONAEMIA [None]
  - HYPONATRAEMIA [None]
  - DEMENTIA [None]
  - STATUS EPILEPTICUS [None]
